FAERS Safety Report 5112803-9 (Version None)
Quarter: 2006Q3

REPORT INFORMATION
  Report Type: 
  Country: None (occurrence: None)
  Receive Date: 20060922
  Receipt Date: 20060727
  Transmission Date: 20061208
  Serious: Yes (Life-Threatening, Hospitalization, Other)
  Sender: FDA-Public Use
  Company Number: US-MERCK-0607USA05547

PATIENT
  Age: 45 Year
  Sex: Female

DRUGS (11)
  1. FOSAMAX [Suspect]
     Indication: OSTEOPOROSIS
     Route: 048
     Dates: start: 20060713, end: 20060701
  2. ZETIA [Concomitant]
     Route: 048
  3. PREMARIN [Concomitant]
     Route: 065
  4. VERAPAMIL [Concomitant]
     Route: 065
  5. XANAX [Concomitant]
     Route: 065
  6. PRILOSEC [Concomitant]
     Route: 065
  7. HYDROCODONE BITARTRATE [Concomitant]
     Route: 065
  8. DILTIAZEM HYDROCHLORIDE [Concomitant]
     Route: 065
  9. CARISOPRODOL [Concomitant]
     Route: 065
  10. ASPIRIN [Concomitant]
     Route: 065
  11. MOBIC [Concomitant]
     Route: 065

REACTIONS (4)
  - ARTERIAL HAEMORRHAGE [None]
  - EPISTAXIS [None]
  - PHARYNGEAL HAEMORRHAGE [None]
  - THROAT IRRITATION [None]
